FAERS Safety Report 8169532-7 (Version None)
Quarter: 2012Q1

REPORT INFORMATION
  Report Type: 
  Country: None (occurrence: None)
  Receive Date: 20120104
  Receipt Date: 20111028
  Transmission Date: 20120608
  Serious: No
  Sender: FDA-Public Use
  Company Number: 2011HGS-002709

PATIENT
  Age: 64 Year
  Sex: Female
  Weight: 86.1834 kg

DRUGS (17)
  1. DIFLUCAN (FLUCONAZOLE) (FLUCONAZOLE) [Concomitant]
  2. ATIVAN [Concomitant]
  3. PREDNISONE [Concomitant]
  4. BENLYSTA [Suspect]
     Indication: SYSTEMIC LUPUS ERYTHEMATOSUS
     Dosage: INTRAVENOUS DRIP
     Route: 041
     Dates: start: 20110908
  5. DILAUDID (HYDROMORPHONE HYDROCHLORIDE) (HYDROMORPHONE HYDROCHLORIDE) [Concomitant]
  6. ZYRTEC [Concomitant]
  7. ALIGN (LACTOBACILLUS REUTERI) (LACTOBACILLUS REUTERI) [Concomitant]
  8. FAMOTIDINE [Concomitant]
  9. COLACE (DOCUSATE SODIUM) (DOCUSATE SODIUM) [Concomitant]
  10. ZOFRAN (ONDANSETRON HYDROCHLORIDE) (ONDANSETRON HYDROCHLORIDE) [Concomitant]
  11. NEURONTIN [Concomitant]
  12. MULTIVITAMINS (MULTIVITAMINS) (ERGOCALCIFEROL, ASCORBIC ACID, FOLIC AC [Concomitant]
  13. CELLCEPT (MYCOPHENOLATE MOFETIL) (MYCOPHENOLATE MOFETIL) [Concomitant]
  14. TOPROL XL (ETOPROLOL SUCCINATE) (METOPROLOL SUCCINATE) [Concomitant]
  15. BENEFIBER (CYAMOPSIS TETRAGONOLOBUS GUM) (CYAMOPSIS TETRAGONOLOBUS GUM [Concomitant]
  16. MECLIZINE (MECLOZINE) (MECLOZINE) [Concomitant]
  17. VIACTIV (CALCIUM) (CALCIUM) [Concomitant]

REACTIONS (7)
  - DIZZINESS [None]
  - FATIGUE [None]
  - DEVICE RELATED INFECTION [None]
  - MYALGIA [None]
  - NAUSEA [None]
  - FLATULENCE [None]
  - ABDOMINAL PAIN UPPER [None]
